FAERS Safety Report 7981749-0 (Version None)
Quarter: 2011Q4

REPORT INFORMATION
  Report Type: 
  Country: None (occurrence: None)
  Receive Date: 20111215
  Receipt Date: 20111207
  Transmission Date: 20120403
  Serious: Yes (Disabling)
  Sender: FDA-Public Use
  Company Number: FR-JNJFOC-20111200911

PATIENT
  Sex: Female

DRUGS (12)
  1. CONCERTA [Suspect]
     Indication: NARCOLEPSY
     Route: 048
     Dates: start: 20060101, end: 20080101
  2. XYREM [Concomitant]
     Indication: NARCOLEPSY
     Route: 065
     Dates: start: 20080901
  3. DEXEDRINE [Concomitant]
     Indication: NARCOLEPSY
     Route: 065
     Dates: start: 20081101
  4. ESCITALOPRAM OXALATE [Concomitant]
     Indication: DEPRESSION
     Route: 065
  5. DEXTROAMPHETAMINE [Suspect]
     Indication: PRODUCT USED FOR UNKNOWN INDICATION
     Route: 048
     Dates: start: 20081101, end: 20110401
  6. MODAFANIL [Concomitant]
     Indication: NARCOLEPSY
     Route: 065
     Dates: start: 20060101
  7. MEDIATOR [Suspect]
     Indication: PRODUCT USED FOR UNKNOWN INDICATION
     Route: 048
     Dates: start: 20040201
  8. RITALIN [Suspect]
     Indication: NARCOLEPSY
     Route: 048
     Dates: start: 20060101, end: 20081101
  9. MEDIATOR [Suspect]
     Route: 048
     Dates: start: 20051001, end: 20060901
  10. PLAQUENIL [Concomitant]
     Indication: SYSTEMIC LUPUS ERYTHEMATOSUS
     Route: 065
  11. PREDNISONE TAB [Concomitant]
     Indication: SYSTEMIC LUPUS ERYTHEMATOSUS
     Route: 065
  12. GLUCOPHAGE [Concomitant]
     Indication: TYPE 2 DIABETES MELLITUS
     Route: 065

REACTIONS (2)
  - AORTIC VALVE INCOMPETENCE [None]
  - OFF LABEL USE [None]
